FAERS Safety Report 8288259-4 (Version None)
Quarter: 2012Q2

REPORT INFORMATION
  Report Type: 
  Country: None (occurrence: None)
  Receive Date: 20120416
  Receipt Date: 20120402
  Transmission Date: 20120825
  Serious: Yes (Other)
  Sender: FDA-Public Use
  Company Number: US-ENDO PHARMACEUTICALS INC.-OPER20120472

PATIENT
  Sex: Female

DRUGS (5)
  1. OPANA ER [Suspect]
     Indication: PRODUCT USED FOR UNKNOWN INDICATION
     Route: 048
     Dates: end: 20110101
  2. BENZODIAZEPINE [Suspect]
     Indication: DRUG ABUSE
     Dosage: UNK
  3. COCAINE [Suspect]
     Indication: DRUG ABUSE
     Dosage: UNK
  4. MARIJUANA [Suspect]
     Indication: DRUG ABUSE
     Dosage: UNK
  5. OXYCODONE HCL [Suspect]
     Indication: DRUG ABUSE
     Dosage: UNK

REACTIONS (3)
  - DRUG SCREEN NEGATIVE [None]
  - DRUG ABUSE [None]
  - DRUG SCREEN POSITIVE [None]
